FAERS Safety Report 14764157 (Version 1)
Quarter: 2018Q2

REPORT INFORMATION
  Report Type: Spontaneous
  Country: FR (occurrence: FR)
  Receive Date: 20180416
  Receipt Date: 20180416
  Transmission Date: 20180711
  Serious: Yes (Other)
  Sender: FDA-Public Use
  Company Number: FR-MYLANLABS-2018M1023278

PATIENT
  Age: 36 Year
  Sex: Female
  Weight: 66 kg

DRUGS (4)
  1. ALMOTRIPTAN MYLAN 12,5 MG, COMPRIM? PELLICUL? (ALMOTRIPTAN) [Suspect]
     Active Substance: ALMOTRIPTAN
     Indication: MIGRAINE
     Dosage: 12.5 MG, QD
     Route: 048
     Dates: start: 20180127, end: 20180129
  2. PIVALONE                           /03009501/ [Suspect]
     Active Substance: NEOMYCIN\POLYMYXIN B\TIXOCORTOL
     Indication: BRONCHITIS
     Dosage: 1 PULV?RISATION 3X/JOUR
     Route: 048
     Dates: start: 20180120, end: 20180127
  3. ROVAMYCINE                         /00074401/ [Suspect]
     Active Substance: SPIRAMYCIN
     Indication: BRONCHITIS
     Dosage: 9 MILLION IU, QD
     Route: 048
     Dates: start: 20180120, end: 20180127
  4. SOLUPRED                           /00016217/ [Suspect]
     Active Substance: PREDNISOLONE
     Indication: BRONCHITIS
     Route: 048
     Dates: start: 20180120, end: 20180125

REACTIONS (4)
  - Choking [Not Recovered/Not Resolved]
  - Paraesthesia [Not Recovered/Not Resolved]
  - Vertigo [Not Recovered/Not Resolved]
  - Affective disorder [Not Recovered/Not Resolved]

NARRATIVE: CASE EVENT DATE: 20180129
